FAERS Safety Report 8307042-4 (Version None)
Quarter: 2012Q2

REPORT INFORMATION
  Report Type: 
  Country: None (occurrence: None)
  Receive Date: 20120424
  Receipt Date: 20120416
  Transmission Date: 20120825
  Serious: Yes (Other)
  Sender: FDA-Public Use
  Company Number: PHHY2012BR027608

PATIENT
  Sex: Female
  Weight: 80 kg

DRUGS (5)
  1. TRILEPTAL [Suspect]
     Dosage: 600 MG, BID
     Route: 048
     Dates: start: 20120319
  2. METFORMIN HCL [Concomitant]
     Indication: DIABETES MELLITUS
     Dosage: 1 DF, DAILY
     Route: 048
  3. OLCADIL [Concomitant]
     Indication: INSOMNIA
     Dosage: 1 DF,DAILY
     Route: 048
  4. BETNOVATE [Concomitant]
     Indication: PSORIASIS
  5. TRILEPTAL [Suspect]
     Dosage: 300 MG, BID
     Route: 048
     Dates: start: 20120305

REACTIONS (8)
  - HEARING IMPAIRED [None]
  - GAIT DISTURBANCE [None]
  - SPEECH DISORDER [None]
  - ASTHENIA [None]
  - SOMNOLENCE [None]
  - JAW DISORDER [None]
  - IMPATIENCE [None]
  - CRYING [None]
